FAERS Safety Report 14527080 (Version 1)
Quarter: 2018Q1

REPORT INFORMATION
  Report Type: Spontaneous
  Country: US (occurrence: US)
  Receive Date: 20180212
  Receipt Date: 20180212
  Transmission Date: 20180509
  Serious: No
  Sender: FDA-Public Use
  Company Number: None

PATIENT
  Sex: Female
  Weight: 63 kg

DRUGS (1)
  1. LEVOFLOXACIN 500MG [Suspect]
     Active Substance: LEVOFLOXACIN
     Indication: SINUSITIS
     Dosage: ?          QUANTITY:10 TABLET(S);?
     Route: 048

REACTIONS (6)
  - Nausea [None]
  - Vomiting [None]
  - Palpitations [None]
  - Anxiety [None]
  - Angina pectoris [None]
  - Paraesthesia [None]

NARRATIVE: CASE EVENT DATE: 20180112
